FAERS Safety Report 14799727 (Version 1)
Quarter: 2018Q2

REPORT INFORMATION
  Report Type: Report from Study
  Country: CA (occurrence: CA)
  Receive Date: 20180424
  Receipt Date: 20180424
  Transmission Date: 20180711
  Serious: Yes (Other)
  Sender: FDA-Public Use
  Company Number: CA-INCYTE CORPORATION-2016IN003066

PATIENT

DRUGS (4)
  1. JAKAVI [Suspect]
     Active Substance: RUXOLITINIB
     Dosage: 15 MG, BID
     Route: 048
     Dates: start: 201708
  2. JAKAVI [Suspect]
     Active Substance: RUXOLITINIB
     Indication: POLYCYTHAEMIA VERA
     Dosage: 10 MG, BID
     Route: 048
     Dates: start: 201603
  3. JAKAVI [Suspect]
     Active Substance: RUXOLITINIB
     Dosage: 20 MG, BID
     Route: 048
     Dates: end: 201708
  4. JAKAVI [Suspect]
     Active Substance: RUXOLITINIB
     Dosage: 15 MG, BID
     Route: 048

REACTIONS (16)
  - Asthenia [Unknown]
  - Lymphocyte count decreased [Unknown]
  - Red blood cell count abnormal [Unknown]
  - Haematocrit increased [Recovering/Resolving]
  - Urinary tract infection [Recovered/Resolved]
  - Herpes zoster [Recovering/Resolving]
  - Energy increased [Unknown]
  - Gastrointestinal disorder [Unknown]
  - Infection [Unknown]
  - Pain [Unknown]
  - Platelet count abnormal [Unknown]
  - Hypercoagulation [Unknown]
  - Skin lesion [Unknown]
  - Pruritus [Unknown]
  - Dizziness [Unknown]
  - Red blood cell count increased [Unknown]
